FAERS Safety Report 9959289 (Version 2)
Quarter: 2014Q1

REPORT INFORMATION
  Report Type: Spontaneous
  Country: US (occurrence: US)
  Receive Date: 20140305
  Receipt Date: 20140305
  Transmission Date: 20141002
  Serious: No
  Sender: FDA-Public Use
  Company Number: US-ABBVIE-13P-163-1092545-00

PATIENT
  Age: 61 Year
  Sex: Female
  Weight: 99.88 kg

DRUGS (13)
  1. HUMIRA [Suspect]
     Indication: RHEUMATOID ARTHRITIS
  2. METHOTREXATE [Concomitant]
     Indication: RHEUMATOID ARTHRITIS
     Dosage: SIX 2.5MG TABS PER WEEK
     Dates: start: 2012, end: 201306
  3. METHOTREXATE [Concomitant]
     Dosage: EIGHT 2.5MG TABS PER WEEK
     Dates: start: 201306
  4. FOLIC ACID [Concomitant]
     Indication: RHEUMATOID ARTHRITIS
  5. WELLBUTRIN [Concomitant]
     Indication: DEPRESSION
  6. CITALOPRAM [Concomitant]
     Indication: DEPRESSION
  7. CITALOPRAM [Concomitant]
     Indication: ANXIETY
  8. TRIAMTERENE HCTZ [Concomitant]
     Indication: HYPERTENSION
  9. METOPROLOL [Concomitant]
     Indication: HYPERTENSION
  10. NABUMETONE [Concomitant]
     Indication: PAIN
  11. NABUMETONE [Concomitant]
     Indication: RHEUMATOID ARTHRITIS
  12. ALPRAZOLAM [Concomitant]
     Indication: INSOMNIA
  13. ALPRAZOLAM [Concomitant]
     Indication: STRESS

REACTIONS (4)
  - Increased tendency to bruise [Not Recovered/Not Resolved]
  - Arthritis [Not Recovered/Not Resolved]
  - Rheumatoid arthritis [Not Recovered/Not Resolved]
  - Arthralgia [Not Recovered/Not Resolved]
